FAERS Safety Report 8946405 (Version 1)
Quarter: 2012Q4

REPORT INFORMATION
  Report Type: 
  Country: US (occurrence: US)
  Receive Date: 20121204
  Receipt Date: 20121204
  Transmission Date: 20130627
  Serious: No
  Sender: FDA-Public Use
  Company Number: US-AMGEN-USASP2012072223

PATIENT
  Age: 39 Year
  Sex: Male
  Weight: 121.9 kg

DRUGS (2)
  1. ENBREL [Suspect]
     Indication: PSORIATIC ARTHROPATHY
     Dosage: 50 mg, qwk
     Route: 058
     Dates: start: 20120813
  2. BENICAR [Concomitant]
     Indication: HYPERTENSION
     Dosage: 20 mg, qd
     Route: 048

REACTIONS (5)
  - Erythema [Not Recovered/Not Resolved]
  - Oedema peripheral [Not Recovered/Not Resolved]
  - Contusion [Not Recovered/Not Resolved]
  - Ecchymosis [Recovered/Resolved]
  - Injection site haemorrhage [Recovered/Resolved]
